FAERS Safety Report 12985940 (Version 1)
Quarter: 2016Q4

REPORT INFORMATION
  Report Type: Report from Study
  Country: IR (occurrence: IR)
  Receive Date: 20161130
  Receipt Date: 20161130
  Transmission Date: 20170207
  Serious: Yes (Death)
  Sender: FDA-Public Use
  Company Number: IR-ROCHE-1861680

PATIENT

DRUGS (1)
  1. ALTEPLASE [Suspect]
     Active Substance: ALTEPLASE
     Indication: ISCHAEMIC STROKE
     Dosage: 0.9 MG/KG UPTO MAXIMUM OF 90 MG, 10 % - INJECTED AS A BOLUS DOSE AND REMAINING INFUSED OVER AN HOUR
     Route: 042

REACTIONS (1)
  - Angioedema [Fatal]
